FAERS Safety Report 24214358 (Version 1)
Quarter: 2024Q3

REPORT INFORMATION
  Report Type: Spontaneous
  Country: RU (occurrence: RU)
  Receive Date: 20240815
  Receipt Date: 20240815
  Transmission Date: 20241017
  Serious: Yes (Other)
  Sender: INCYTE
  Company Number: RU-002147023-NVSC2024RU162275

PATIENT

DRUGS (6)
  1. RUXOLITINIB [Suspect]
     Active Substance: RUXOLITINIB
     Indication: Graft versus host disease in skin
     Dosage: 0.15 MG/KG
     Route: 065
  2. RUXOLITINIB [Suspect]
     Active Substance: RUXOLITINIB
     Indication: Immunosuppressant drug therapy
  3. IBRUTINIB [Suspect]
     Active Substance: IBRUTINIB
     Indication: Graft versus host disease in skin
     Dosage: UNK
     Route: 065
  4. IBRUTINIB [Suspect]
     Active Substance: IBRUTINIB
     Indication: Immunosuppressant drug therapy
  5. SIROLIMUS [Suspect]
     Active Substance: SIROLIMUS
     Indication: Graft versus host disease in skin
     Dosage: UNK
     Route: 065
  6. SIROLIMUS [Suspect]
     Active Substance: SIROLIMUS
     Indication: Immunosuppressant drug therapy

REACTIONS (7)
  - Dacryocystitis [Unknown]
  - Keratitis [Unknown]
  - Sinusitis [Unknown]
  - Dental caries [Unknown]
  - Disease progression [Unknown]
  - Graft versus host disease in skin [Unknown]
  - Encephalitis bacterial [Unknown]

NARRATIVE: CASE EVENT DATE: 20211001
